FAERS Safety Report 4511147-3 (Version None)
Quarter: 2004Q4

REPORT INFORMATION
  Report Type: 
  Country: None (occurrence: None)
  Receive Date: 20041012
  Receipt Date: 20040715
  Transmission Date: 20050328
  Serious: No
  Sender: FDA-Public Use
  Company Number: PHEH2004US07609

PATIENT
  Sex: Male

DRUGS (1)
  1. ELIDEL [Suspect]
     Indication: PRURITUS
     Dosage: BID, TOPICAL
     Route: 061
     Dates: start: 20040301

REACTIONS (1)
  - EYE DISORDER [None]
